FAERS Safety Report 15463435 (Version 2)
Quarter: 2019Q1

REPORT INFORMATION
  Report Type: Spontaneous
  Country: CA (occurrence: CA)
  Receive Date: 20181004
  Receipt Date: 20190329
  Transmission Date: 20190417
  Serious: Yes (Other)
  Sender: FDA-Public Use
  Company Number: CA-CELLTRION INC.-2017CA013257

PATIENT

DRUGS (14)
  1. INFLECTRA [Suspect]
     Active Substance: INFLIXIMAB-DYYB
     Indication: CROHN^S DISEASE
     Dosage: 550 MG, CYCLIC (AT 0,2,6 WEEKS THEN 8 WEEKS)
     Route: 042
     Dates: start: 20170907
  2. INFLECTRA [Suspect]
     Active Substance: INFLIXIMAB-DYYB
     Dosage: UNK
     Route: 042
     Dates: start: 20180405
  3. INFLECTRA [Suspect]
     Active Substance: INFLIXIMAB-DYYB
     Dosage: 550 MG, CYCLIC (AT 0,2,6 WEEKS THEN 8 WEEKS)
     Route: 042
     Dates: start: 20180726
  4. CALCIUM [Concomitant]
     Active Substance: CALCIUM
     Dosage: UNK
     Route: 065
  5. IRON [Concomitant]
     Active Substance: IRON
     Dosage: UNK
  6. INFLECTRA [Suspect]
     Active Substance: INFLIXIMAB-DYYB
     Dosage: UNK
     Route: 042
     Dates: start: 20170921
  7. CORTISONE [Concomitant]
     Active Substance: CORTISONE\HYDROCORTISONE
     Dosage: UNK
  8. INFLECTRA [Suspect]
     Active Substance: INFLIXIMAB-DYYB
     Dosage: 550 MG, CYCLIC (AT 0,2,6 WEEKS THEN 8 WEEKS)
     Route: 042
     Dates: start: 20180920
  9. VITAMIN D [Concomitant]
     Active Substance: CHOLECALCIFEROL
     Dosage: UNK
  10. INFLECTRA [Suspect]
     Active Substance: INFLIXIMAB-DYYB
     Dosage: 550 MG, CYCLIC (AT 0,2,6 WEEKS THEN 8 WEEKS)
     Route: 042
     Dates: start: 20180208
  11. INFLECTRA [Suspect]
     Active Substance: INFLIXIMAB-DYYB
     Dosage: 550 MG, CYCLIC (AT 0,2,6 WEEKS THEN 8 WEEKS)
     Route: 042
     Dates: start: 20180531
  12. INFLECTRA [Suspect]
     Active Substance: INFLIXIMAB-DYYB
     Dosage: 550 MG, CYCLIC (AT 0,2,6 WEEKS THEN 8 WEEKS)
     Route: 042
     Dates: start: 20190314
  13. PREDNISONE. [Concomitant]
     Active Substance: PREDNISONE
     Dosage: UNK
     Dates: start: 20170824
  14. INFLECTRA [Suspect]
     Active Substance: INFLIXIMAB-DYYB
     Dosage: 550 MG, CYCLIC (AT 0,2,6 WEEKS THEN 8 WEEKS)
     Route: 042
     Dates: start: 20190110

REACTIONS (12)
  - Macular fibrosis [Unknown]
  - Weight increased [Not Recovered/Not Resolved]
  - Vomiting [Not Recovered/Not Resolved]
  - Decreased appetite [Not Recovered/Not Resolved]
  - Umbilical hernia [Not Recovered/Not Resolved]
  - Condition aggravated [Unknown]
  - Increased appetite [Unknown]
  - Macular degeneration [Unknown]
  - Drug ineffective [Recovering/Resolving]
  - Oedema peripheral [Unknown]
  - Inappropriate schedule of product administration [Unknown]
  - Swelling [Unknown]

NARRATIVE: CASE EVENT DATE: 20170921
